FAERS Safety Report 5154696-X (Version None)
Quarter: 2006Q4

REPORT INFORMATION
  Report Type: 
  Country: None (occurrence: None)
  Receive Date: 20061114
  Receipt Date: 20061030
  Transmission Date: 20070319
  Serious: Yes (Other)
  Sender: FDA-Public Use
  Company Number: 001-0945-990036

PATIENT
  Age: 48 Year
  Sex: Female
  Weight: 70.3075 kg

DRUGS (19)
  1. NEURONTIN [Suspect]
     Indication: PARTIAL SEIZURES
     Dosage: ORAL
     Route: 048
     Dates: start: 19981030, end: 20061001
  2. LYRICA [Suspect]
     Indication: TEMPORAL LOBE EPILEPSY
     Dosage: 400 MG (200 MG , 2 IN 1 D)
     Dates: start: 20061001
  3. PREDNISONE TAB [Suspect]
  4. SANDOSTATIN [Suspect]
     Indication: ABDOMINAL PAIN
     Dosage: 30 TO 50 MICROGRAMS
  5. RELAFEN [Concomitant]
  6. PREMPRO [Concomitant]
  7. PREVACID [Concomitant]
  8. IMURAN [Concomitant]
  9. SYNTHROID [Concomitant]
  10. THEO-DUR [Concomitant]
  11. PLAQUENIL [Concomitant]
  12. PREMARIN [Concomitant]
  13. KEPPRA [Concomitant]
  14. KLONOPIN [Concomitant]
  15. ZOFRAN [Concomitant]
  16. ULTRAM [Concomitant]
  17. ZELNORM [Concomitant]
  18. ALLEGRA [Concomitant]
  19. ASPIRIN [Concomitant]

REACTIONS (13)
  - BRADYPHRENIA [None]
  - CONDITION AGGRAVATED [None]
  - CONVULSION [None]
  - DRUG INEFFECTIVE [None]
  - DYSPHAGIA [None]
  - FEELING ABNORMAL [None]
  - HUNGER [None]
  - NAUSEA [None]
  - SOMNOLENCE [None]
  - SPEECH DISORDER [None]
  - VERTIGO [None]
  - WEIGHT DECREASED [None]
  - WEIGHT INCREASED [None]
